FAERS Safety Report 5284544-9 (Version None)
Quarter: 2007Q2

REPORT INFORMATION
  Report Type: 
  Country: None (occurrence: None)
  Receive Date: 20070403
  Receipt Date: 20070330
  Transmission Date: 20071010
  Serious: Yes (Other)
  Sender: FDA-Public Use
  Company Number: JP-JPN-A200700840

PATIENT
  Age: 6 Year
  Sex: Male
  Weight: 27 kg

DRUGS (5)
  1. RELENZA [Suspect]
     Indication: INFLUENZA
     Dosage: 10MG TWICE PER DAY
     Route: 055
     Dates: start: 20070227, end: 20070227
  2. ASVERIN [Concomitant]
     Indication: COUGH
     Dosage: 2.25G PER DAY
     Route: 048
     Dates: start: 20070227
  3. PERIACTIN [Concomitant]
     Dosage: .6G PER DAY
     Route: 048
     Dates: start: 20070227
  4. UNKNOWN DRUG [Concomitant]
     Indication: COUGH
     Dosage: .9G PER DAY
     Route: 048
     Dates: start: 20070227
  5. CALONAL [Concomitant]
     Dosage: 1G PER DAY
     Route: 048
     Dates: start: 20070201

REACTIONS (9)
  - AGGRESSION [None]
  - AGITATION [None]
  - AMNESIA [None]
  - CHEST DISCOMFORT [None]
  - DELIRIUM [None]
  - FEAR [None]
  - ILL-DEFINED DISORDER [None]
  - NIGHTMARE [None]
  - RESTLESSNESS [None]
